FAERS Safety Report 15239835 (Version 2)
Quarter: 2018Q4

REPORT INFORMATION
  Report Type: Report from Study
  Country: US (occurrence: US)
  Receive Date: 20180803
  Receipt Date: 20181026
  Transmission Date: 20190204
  Serious: Yes (Other)
  Sender: FDA-Public Use
  Company Number: US-TEVA-2018-US-937192

PATIENT
  Age: 41 Year
  Sex: Female

DRUGS (1)
  1. COPAXONE [Suspect]
     Active Substance: GLATIRAMER ACETATE
     Indication: MULTIPLE SCLEROSIS
     Route: 058
     Dates: start: 20180511, end: 20180901

REACTIONS (5)
  - Migraine [Unknown]
  - Hot flush [Unknown]
  - Headache [Unknown]
  - Syncope [Unknown]
  - Chills [Unknown]

NARRATIVE: CASE EVENT DATE: 20180723
